FAERS Safety Report 4276449-7 (Version None)
Quarter: 2004Q1

REPORT INFORMATION
  Report Type: 
  Country: None (occurrence: None)
  Receive Date: 20040121
  Receipt Date: 20040121
  Transmission Date: 20041129
  Serious: Yes (Hospitalization)
  Sender: FDA-Public Use
  Company Number: None

PATIENT
  Age: 85 Year
  Sex: Male
  Weight: 92 kg

DRUGS (3)
  1. ZYVOX [Suspect]
     Indication: HYPERSENSITIVITY
     Dosage: 600 MG PO BID
     Route: 048
     Dates: start: 20030812, end: 20030905
  2. ZYVOX [Suspect]
     Indication: OSTEOMYELITIS
     Dosage: 600 MG PO BID
     Route: 048
     Dates: start: 20030812, end: 20030905
  3. ZYVOX [Suspect]
     Indication: STAPHYLOCOCCAL INFECTION
     Dosage: 600 MG PO BID
     Route: 048
     Dates: start: 20030812, end: 20030905

REACTIONS (1)
  - THROMBOCYTOPENIA [None]
